FAERS Safety Report 15264817 (Version 1)
Quarter: 2018Q3

REPORT INFORMATION
  Report Type: Spontaneous
  Country: US (occurrence: US)
  Receive Date: 20180723
  Receipt Date: 20180723
  Transmission Date: 20181010
  Serious: Yes (Hospitalization)
  Sender: FDA-Public Use
  Company Number: None

PATIENT
  Age: 65 Year
  Sex: Female
  Weight: 72.21 kg

DRUGS (2)
  1. PACITAXEL [Suspect]
     Active Substance: PACLITAXEL
     Indication: ENDOMETRIAL CANCER
     Dosage: ?          OTHER FREQUENCY:Q 21 DAYS X 6;?
     Route: 042
     Dates: start: 20180710
  2. CARBOPLATIN. [Suspect]
     Active Substance: CARBOPLATIN
     Indication: ENDOMETRIAL CANCER
     Dosage: ?          OTHER FREQUENCY:Q 21 DAYS X 6;?
     Route: 042
     Dates: start: 20180710

REACTIONS (6)
  - Facial paralysis [None]
  - Carotid artery stenosis [None]
  - Dysarthria [None]
  - Ejection fraction decreased [None]
  - Hypotension [None]
  - Haemorrhoidal haemorrhage [None]

NARRATIVE: CASE EVENT DATE: 20180716
